FAERS Safety Report 19507026 (Version 1)
Quarter: 2021Q3

REPORT INFORMATION
  Report Type: Spontaneous
  Country: CN (occurrence: CN)
  Receive Date: 20210708
  Receipt Date: 20210708
  Transmission Date: 20211014
  Serious: Yes (Hospitalization)
  Sender: FDA-Public Use
  Company Number: CN-ASTRAZENECA-2021A593148

PATIENT
  Age: 12173 Day
  Sex: Female
  Weight: 45 kg

DRUGS (2)
  1. NEXIUM [Suspect]
     Active Substance: ESOMEPRAZOLE MAGNESIUM
     Indication: ACID PEPTIC DISEASE
     Route: 048
     Dates: start: 20210317, end: 20210329
  2. AMOXICILLIN. [Suspect]
     Active Substance: AMOXICILLIN
     Indication: INFECTION
     Route: 048
     Dates: start: 20210317, end: 20210329

REACTIONS (8)
  - Joint swelling [Recovered/Resolved]
  - Lip swelling [Recovered/Resolved]
  - Laryngeal obstruction [Unknown]
  - Faeces discoloured [Unknown]
  - Rash [Recovered/Resolved]
  - Pruritus [Recovered/Resolved]
  - Chest discomfort [Recovered/Resolved]
  - Face oedema [Recovered/Resolved]

NARRATIVE: CASE EVENT DATE: 20210329
